FAERS Safety Report 13669458 (Version 1)
Quarter: 2017Q2

REPORT INFORMATION
  Report Type: Spontaneous
  Country: ES (occurrence: ES)
  Receive Date: 20170620
  Receipt Date: 20170620
  Transmission Date: 20170830
  Serious: Yes (Other)
  Sender: FDA-Public Use
  Company Number: ES-DSJP-DSE-2017-118525

PATIENT

DRUGS (1)
  1. OPENVAS 20 MG [Suspect]
     Active Substance: OLMESARTAN MEDOXOMIL
     Indication: HYPERTENSION
     Dosage: 20 MG, QD
     Route: 048
     Dates: start: 20170524

REACTIONS (3)
  - Cholestatic pruritus [Unknown]
  - Choluria [Unknown]
  - Jaundice [Unknown]

NARRATIVE: CASE EVENT DATE: 20170529
